FAERS Safety Report 5789591-6 (Version None)
Quarter: 2008Q2

REPORT INFORMATION
  Report Type: 
  Country: None (occurrence: None)
  Receive Date: 20080618
  Receipt Date: 20080208
  Transmission Date: 20081010
  Serious: Yes (Other)
  Sender: FDA-Public Use
  Company Number: 200810910US

PATIENT
  Age: 38 Year
  Sex: Male

DRUGS (3)
  1. LANTUS [Suspect]
     Indication: TYPE 1 DIABETES MELLITUS
     Dosage: HS
     Dates: start: 20060101
  2. OPTICLIK [Suspect]
     Indication: TYPE 1 DIABETES MELLITUS
  3. INSULIN HUMAN (HUMULIN R) [Concomitant]

REACTIONS (5)
  - DEPRESSED LEVEL OF CONSCIOUSNESS [None]
  - HYPOGLYCAEMIA [None]
  - HYPOGLYCAEMIA UNAWARENESS [None]
  - LOSS OF CONSCIOUSNESS [None]
  - STARING [None]
